FAERS Safety Report 15414896 (Version 3)
Quarter: 2018Q4

REPORT INFORMATION
  Report Type: Spontaneous
  Country: NO (occurrence: NO)
  Receive Date: 20180921
  Receipt Date: 20181016
  Transmission Date: 20190204
  Serious: Yes (Hospitalization, Other)
  Sender: FDA-Public Use
  Company Number: NO-SA-2018SA260417

PATIENT
  Age: 65 Year
  Sex: Male

DRUGS (4)
  1. METOPROLOL SALT NOT SPECIFIED [Interacting]
     Active Substance: METOPROLOL
     Indication: CORONARY ARTERY DISEASE
     Route: 048
  2. ISOSORBIDE MONONITRATE. [Interacting]
     Active Substance: ISOSORBIDE MONONITRATE
     Indication: CORONARY ARTERY DISEASE
     Route: 048
  3. TOUJEO [Suspect]
     Active Substance: INSULIN GLARGINE
     Indication: TYPE 2 DIABETES MELLITUS
     Dosage: 300 UNITS PER 24 HOURS. 1 ML = 300 UNITS.
     Route: 058
  4. TOUJEO [Interacting]
     Active Substance: INSULIN GLARGINE
     Dosage: 140 UNITS PER 24 HOURS.
     Route: 058
     Dates: start: 20180525

REACTIONS (2)
  - Drug interaction [Unknown]
  - Bradycardia [Recovered/Resolved]

NARRATIVE: CASE EVENT DATE: 20180525
